FAERS Safety Report 5550691-7 (Version None)
Quarter: 2007Q4

REPORT INFORMATION
  Report Type: 
  Country: None (occurrence: None)
  Receive Date: 20071212
  Receipt Date: 20070508
  Transmission Date: 20080405
  Serious: No
  Sender: FDA-Public Use
  Company Number: US-AMGEN-KDL223722

PATIENT
  Sex: Female

DRUGS (2)
  1. ENBREL [Suspect]
     Indication: PSORIASIS
     Route: 058
     Dates: start: 20050101
  2. CLARITIN [Concomitant]

REACTIONS (5)
  - ARTHROPOD BITE [None]
  - ERYTHEMA [None]
  - INFECTION [None]
  - LOCALISED OEDEMA [None]
  - SKIN DISCOLOURATION [None]
